FAERS Safety Report 5878839-5 (Version None)
Quarter: 2008Q3

REPORT INFORMATION
  Report Type: 
  Country: None (occurrence: None)
  Receive Date: 20080910
  Receipt Date: 20080910
  Transmission Date: 20090109
  Serious: Yes (Other)
  Sender: FDA-Public Use
  Company Number: None

PATIENT
  Sex: Male
  Weight: 115.3 kg

DRUGS (1)
  1. GANCICLOVIR [Suspect]
     Dates: start: 20080816, end: 20080903

REACTIONS (1)
  - WHITE BLOOD CELL COUNT DECREASED [None]
